FAERS Safety Report 6665322-2 (Version None)
Quarter: 2010Q1

REPORT INFORMATION
  Report Type: 
  Country: None (occurrence: None)
  Receive Date: 20100330
  Receipt Date: 20100323
  Transmission Date: 20100710
  Serious: Yes (Death, Life-Threatening, Hospitalization, Disabling)
  Sender: FDA-Public Use
  Company Number: PL-JNJFOC-20070703368

PATIENT
  Age: 75 Year
  Sex: Female

DRUGS (9)
  1. DECITABINE (DECITABINE) LYOPHILIZED POWDER [Suspect]
     Indication: ACUTE MYELOID LEUKAEMIA
     Dosage: 20MG/M2, IN 1 DAY, INTRAVENOUS
     Route: 042
     Dates: start: 20070411, end: 20070707
  2. ONDANSETRON [Concomitant]
  3. OMEPRAZOLE [Concomitant]
  4. ALUMINIUM HYDROXIDE (ALUMINUM HYDROXIDE) [Concomitant]
  5. POTASSIUM (POTASSIUM) [Concomitant]
  6. ACYCLOVIR [Concomitant]
  7. METAMIZOLE (METAMIZOLE) [Concomitant]
  8. CEFUROXIME [Concomitant]
  9. . [Concomitant]

REACTIONS (12)
  - ARRHYTHMIA SUPRAVENTRICULAR [None]
  - ATRIAL FIBRILLATION [None]
  - BLOOD PRESSURE INCREASED [None]
  - BRONCHOPNEUMONIA [None]
  - CARDIAC FAILURE [None]
  - FEBRILE NEUTROPENIA [None]
  - HYPOKALAEMIA [None]
  - HYPOMAGNESAEMIA [None]
  - MYOCARDIAL INFARCTION [None]
  - PULMONARY OEDEMA [None]
  - SEPSIS [None]
  - URINARY TRACT INFECTION [None]
